FAERS Safety Report 6771990-7 (Version None)
Quarter: 2010Q2

REPORT INFORMATION
  Report Type: 
  Country: None (occurrence: None)
  Receive Date: 20100616
  Receipt Date: 20091210
  Transmission Date: 20101027
  Serious: No
  Sender: FDA-Public Use
  Company Number: US-ASTRAZENECA-2009SE32292

PATIENT
  Sex: Female

DRUGS (4)
  1. RHINOCORT [Suspect]
     Dosage: 2 SPRAYS 1-2 TIMES DAILY
     Route: 045
  2. FLUTICASONE [Concomitant]
  3. NEURONTIN [Concomitant]
  4. LEXAPRO [Concomitant]

REACTIONS (2)
  - ANXIETY [None]
  - INSOMNIA [None]
